FAERS Safety Report 7587394-3 (Version None)
Quarter: 2011Q3

REPORT INFORMATION
  Report Type: 
  Country: None (occurrence: None)
  Receive Date: 20110703
  Receipt Date: 20110622
  Transmission Date: 20111222
  Serious: Yes (Other)
  Sender: FDA-Public Use
  Company Number: GB-ASTRAZENECA-2011SE37717

PATIENT
  Age: 6 Year
  Sex: Female
  Weight: 22 kg

DRUGS (5)
  1. CLONIDINE [Concomitant]
  2. FENTANYL [Suspect]
     Indication: GENERAL ANAESTHESIA
  3. LEVOBUPIVACAINE [Suspect]
     Indication: GENERAL ANAESTHESIA
  4. BUPIVACAINE HCL [Suspect]
     Indication: GENERAL ANAESTHESIA
     Route: 008
  5. ACETAMINOPHEN [Concomitant]
     Route: 042

REACTIONS (2)
  - PALLOR [None]
  - FLUSHING [None]
